FAERS Safety Report 8906314 (Version 2)
Quarter: 2012Q4

REPORT INFORMATION
  Report Type: Spontaneous
  Country: US (occurrence: None)
  Receive Date: 20121107
  Receipt Date: 20121114
  Transmission Date: 20130627
  Serious: Yes (Other)
  Sender: FDA-Public Use
  Company Number: ADR-2012-02024

PATIENT
  Sex: Male

DRUGS (1)
  1. LIORESAL [Suspect]
     Indication: SPASTICITY

REACTIONS (6)
  - Underdose [None]
  - Muscle spasticity [None]
  - Pruritus [None]
  - Wound [None]
  - Hypertonia [None]
  - Drug withdrawal syndrome [None]
